FAERS Safety Report 7130552-2 (Version None)
Quarter: 2010Q4

REPORT INFORMATION
  Report Type: 
  Country: None (occurrence: None)
  Receive Date: 20101201
  Receipt Date: 20101122
  Transmission Date: 20110411
  Serious: Yes (Other)
  Sender: FDA-Public Use
  Company Number: US-ASTRAZENECA-2010SE32802

PATIENT
  Age: 58 Year
  Sex: Female
  Weight: 74.7 kg

DRUGS (3)
  1. ARIMIDEX [Suspect]
     Indication: BREAST CANCER
     Route: 048
     Dates: start: 20090227
  2. CELEBREX [Concomitant]
     Dosage: ONCE A DAY
     Route: 048
  3. ZOLOFT [Concomitant]
     Dosage: ONCE A DAY
     Route: 048

REACTIONS (6)
  - ARTHRALGIA [None]
  - BASAL CELL CARCINOMA [None]
  - DECREASED APPETITE [None]
  - NIGHT SWEATS [None]
  - RESTLESS LEGS SYNDROME [None]
  - WEIGHT DECREASED [None]
